FAERS Safety Report 20755726 (Version 1)
Quarter: 2022Q2

REPORT INFORMATION
  Report Type: Spontaneous
  Country: CN (occurrence: None)
  Receive Date: 20220427
  Receipt Date: 20220427
  Transmission Date: 20220720
  Serious: Yes (Other)
  Sender: FDA-Public Use
  Company Number: 2022A160329

PATIENT
  Age: 67 Year
  Sex: Male
  Weight: 120 kg

DRUGS (1)
  1. IMFINZI [Suspect]
     Active Substance: DURVALUMAB
     Indication: Small cell lung cancer extensive stage
     Dosage: 1500MG/CYCLE.
     Route: 042
     Dates: start: 20211223

REACTIONS (2)
  - Immune-mediated lung disease [Unknown]
  - Cough [Unknown]
